FAERS Safety Report 6223802-8 (Version None)
Quarter: 2009Q2

REPORT INFORMATION
  Report Type: 
  Country: None (occurrence: None)
  Receive Date: 20090611
  Receipt Date: 20090325
  Transmission Date: 20091009
  Serious: Yes (Other)
  Sender: FDA-Public Use
  Company Number: US-ABBOTT-09P-163-0557743-00

PATIENT
  Sex: Female
  Weight: 81.72 kg

DRUGS (4)
  1. HUMIRA [Suspect]
     Indication: RHEUMATOID ARTHRITIS
     Route: 058
     Dates: start: 20051012, end: 20070531
  2. HUMIRA [Suspect]
     Route: 058
     Dates: end: 20090309
  3. METHOTREXATE [Concomitant]
     Indication: DRUG USE FOR UNKNOWN INDICATION
     Dates: start: 20011206, end: 20070513
  4. METHOTREXATE [Concomitant]
     Dates: start: 20070830

REACTIONS (2)
  - ABSCESS [None]
  - ABSCESS ORAL [None]
